FAERS Safety Report 16929466 (Version 1)
Quarter: 2019Q4

REPORT INFORMATION
  Report Type: Spontaneous
  Country: CA (occurrence: CA)
  Receive Date: 20191017
  Receipt Date: 20191017
  Transmission Date: 20200122
  Serious: Yes (Death)
  Sender: FDA-Public Use
  Company Number: CA-ROCHE-2430675

PATIENT
  Age: 68 Year
  Sex: Female

DRUGS (1)
  1. XELODA [Suspect]
     Active Substance: CAPECITABINE
     Indication: GALLBLADDER CANCER
     Route: 048

REACTIONS (17)
  - Dihydropyrimidine dehydrogenase deficiency [Fatal]
  - Heart rate increased [Fatal]
  - White blood cell count decreased [Fatal]
  - Abdominal pain [Fatal]
  - Anal incontinence [Fatal]
  - Blood pressure decreased [Fatal]
  - Body temperature fluctuation [Fatal]
  - Pyrexia [Fatal]
  - Blood potassium decreased [Fatal]
  - Constipation [Fatal]
  - Stomatitis [Fatal]
  - Feeding disorder [Fatal]
  - Septic shock [Fatal]
  - Vomiting [Fatal]
  - Diarrhoea [Fatal]
  - Red blood cell count decreased [Fatal]
  - Oesophageal pain [Fatal]
